FAERS Safety Report 8588095-5 (Version None)
Quarter: 2012Q3

REPORT INFORMATION
  Report Type: 
  Country: None (occurrence: None)
  Receive Date: 20120813
  Receipt Date: 20120809
  Transmission Date: 20120928
  Serious: Yes (Other)
  Sender: FDA-Public Use
  Company Number: US-PFIZER INC-2012194684

PATIENT
  Age: 50 Year
  Sex: Male
  Weight: 99.773 kg

DRUGS (3)
  1. PROCARDIA XL [Suspect]
     Indication: EPISTAXIS
     Dosage: 30 MG, DAILY
     Dates: start: 19990101
  2. PROCARDIA XL [Suspect]
     Indication: HYPERTENSION
  3. HYDROCODONE [Concomitant]
     Indication: BACK DISORDER
     Dosage: 5/500MG, 3X/DAY

REACTIONS (2)
  - HYPERTENSION [None]
  - EPISTAXIS [None]
